FAERS Safety Report 4640772-4 (Version None)
Quarter: 2005Q2

REPORT INFORMATION
  Report Type: 
  Country: None (occurrence: None)
  Receive Date: 20050324
  Receipt Date: 20050112
  Transmission Date: 20051028
  Serious: No
  Sender: FDA-Public Use
  Company Number: 211681

PATIENT
  Age: 70 Year
  Sex: Male
  Weight: 65.8 kg

DRUGS (2)
  1. AVASTIN [Suspect]
     Indication: COLON CANCER
     Dosage: 300 MG, Q2W, INTRAVENOUS
     Route: 042
     Dates: start: 20041020
  2. OXALIPLATIN (OXALIPLATIN) [Concomitant]

REACTIONS (1)
  - THROMBOCYTOPENIA [None]
